FAERS Safety Report 4872492-5 (Version None)
Quarter: 2006Q1

REPORT INFORMATION
  Report Type: 
  Country: None (occurrence: None)
  Receive Date: 20060104
  Receipt Date: 20051230
  Transmission Date: 20060701
  Serious: Yes (Other)
  Sender: FDA-Public Use
  Company Number: CH-SANOFI-SYNTHELABO-A01200509131

PATIENT
  Age: 69 Year
  Sex: Male
  Weight: 60 kg

DRUGS (13)
  1. OXALIPLATIN [Suspect]
     Indication: COLON CANCER
     Route: 041
     Dates: start: 20050330, end: 20050613
  2. FLUOROURACIL [Suspect]
     Indication: COLON CANCER
     Route: 041
     Dates: start: 20050330
  3. LEUCOVORIN CALCIUM [Suspect]
     Indication: COLON CANCER
     Route: 041
     Dates: start: 20050330
  4. MAGNESIUM SULFATE [Suspect]
     Indication: COLON CANCER
     Route: 041
     Dates: start: 20050330, end: 20050613
  5. CALCIUM GLUBIONATE [Suspect]
     Indication: COLON CANCER
     Route: 041
     Dates: start: 20050330, end: 20050613
  6. GLUTATHIONE [Suspect]
     Indication: COLON CANCER
     Route: 041
     Dates: start: 20050330, end: 20050613
  7. ONDANSETRON [Concomitant]
     Indication: ADVERSE DRUG REACTION
     Route: 040
     Dates: start: 20050330, end: 20050613
  8. TROPISETRON [Concomitant]
     Indication: ADVERSE DRUG REACTION
     Route: 048
     Dates: start: 20050330, end: 20050613
  9. METOCLOPRAMID [Concomitant]
     Indication: NAUSEA
     Route: 048
  10. METOCLOPRAMID [Concomitant]
     Indication: VOMITING
     Route: 048
  11. DEXAMETHASONE [Concomitant]
     Indication: ADVERSE DRUG REACTION
     Route: 048
     Dates: start: 20050330, end: 20050613
  12. OFLOXACIN [Concomitant]
     Indication: URINARY TRACT INFECTION
     Route: 048
     Dates: start: 20050330, end: 20050403
  13. BACTRIM [Concomitant]
     Indication: URINARY TRACT INFECTION
     Dosage: 800 MG/160 MG - 2 PER DAY
     Dates: start: 20050613, end: 20050619

REACTIONS (5)
  - COGNITIVE DISORDER [None]
  - COORDINATION ABNORMAL [None]
  - GAIT DISTURBANCE [None]
  - SENSORY DISTURBANCE [None]
  - TREMOR [None]
